FAERS Safety Report 6493216-4 (Version None)
Quarter: 2009Q4

REPORT INFORMATION
  Report Type: 
  Country: None (occurrence: None)
  Receive Date: 20091214
  Receipt Date: 20091202
  Transmission Date: 20100525
  Serious: Yes (Hospitalization)
  Sender: FDA-Public Use
  Company Number: JP-AMGEN-US357650

PATIENT
  Sex: Female
  Weight: 58 kg

DRUGS (8)
  1. ENBREL [Suspect]
     Indication: RHEUMATOID ARTHRITIS
     Route: 058
     Dates: start: 20081226, end: 20090605
  2. ENBREL [Suspect]
     Route: 058
     Dates: start: 20090606, end: 20090714
  3. ENBREL [Suspect]
     Route: 058
  4. RHEUMATREX [Suspect]
     Indication: RHEUMATOID ARTHRITIS
     Dosage: 8MG/WEEK
     Route: 048
     Dates: start: 19991203
  5. RHEUMATREX [Suspect]
     Dosage: 8MG/WEEK
     Route: 048
     Dates: start: 20020704, end: 20090701
  6. LOXONIN [Concomitant]
     Indication: PAIN
     Dosage: 180 MG/DAY
     Route: 048
     Dates: start: 20020704
  7. MARZULENE S [Concomitant]
     Dosage: 1.5G/DAY
     Route: 048
     Dates: start: 20020704
  8. AZULFIDINE [Concomitant]
     Indication: RHEUMATOID ARTHRITIS
     Dosage: 500MG/DAY
     Route: 048
     Dates: start: 20020704, end: 20090306

REACTIONS (6)
  - CONDITION AGGRAVATED [None]
  - PNEUMOCYSTIS JIROVECI PNEUMONIA [None]
  - RESPIRATORY FAILURE [None]
  - RHEUMATOID ARTHRITIS [None]
  - SPUTUM CULTURE POSITIVE [None]
  - VERTIGO [None]
